FAERS Safety Report 19930168 (Version 1)
Quarter: 2021Q4

REPORT INFORMATION
  Report Type: Spontaneous
  Country: CN (occurrence: CN)
  Receive Date: 20211007
  Receipt Date: 20211007
  Transmission Date: 20220304
  Serious: Yes (Life-Threatening, Disabling)
  Sender: FDA-Public Use
  Company Number: CN-BAXTER-2021BAX024560

PATIENT
  Age: 63 Year
  Sex: Male
  Weight: 85 kg

DRUGS (24)
  1. CYCLOPHOSPHAMIDE [Suspect]
     Active Substance: CYCLOPHOSPHAMIDE
     Indication: Non-Hodgkin^s lymphoma
     Dosage: CYCLOPHOSPHAMIDE POWDER FOR INJECTION 1.2G + 0.9% SODIUM CHLORIDE INJECTION 500ML (DAY 5)
     Route: 041
     Dates: start: 20201013, end: 20201013
  2. CYCLOPHOSPHAMIDE [Suspect]
     Active Substance: CYCLOPHOSPHAMIDE
     Dosage: CYCLOPHOSPHAMIDE POWDER FOR INJECTION 1.2G + 0.9% SODIUM CHLORIDE INJECTION 500ML (DOSE RE-INTRODUCE
     Route: 041
  3. SODIUM CHLORIDE [Suspect]
     Active Substance: SODIUM CHLORIDE
     Indication: Medication dilution
     Dosage: ETOPOSIDE INJECTION 90MG + 0.9% SODIUM CHLORIDE INJECTION 360ML (DAY 1-4)
     Route: 041
     Dates: start: 20201009, end: 20201012
  4. SODIUM CHLORIDE [Suspect]
     Active Substance: SODIUM CHLORIDE
     Dosage: VINORELBINE TARTRATE INJECTION 10MG + 0.9% SODIUM CHLORIDE INJECTION 250ML (DAY 1-4)
     Route: 041
     Dates: start: 20201009, end: 20201012
  5. SODIUM CHLORIDE [Suspect]
     Active Substance: SODIUM CHLORIDE
     Dosage: CYCLOPHOSPHAMIDE POWDER FOR INJECTION 1.2G + 0.9% SODIUM CHLORIDE INJECTION 500ML (DAY 5)
     Route: 041
     Dates: start: 20201003, end: 20201013
  6. SODIUM CHLORIDE [Suspect]
     Active Substance: SODIUM CHLORIDE
     Dosage: DOSE RE-INTRODUCED
     Route: 041
  7. DEXTROSE [Suspect]
     Active Substance: DEXTROSE
     Indication: Medication dilution
     Dosage: RITUXIMAB 600MG + 5% GLUCOSE INJECTION 540ML (DAY 0)
     Route: 041
     Dates: start: 20201008, end: 20201008
  8. DEXTROSE [Suspect]
     Active Substance: DEXTROSE
     Dosage: DOXORUBICIN LIPOSOME INJECTION 20 MG + 5% GLUCOSE INJECTION 250ML (DAY 1-3)
     Route: 041
     Dates: start: 20201009, end: 20201011
  9. DEXTROSE [Suspect]
     Active Substance: DEXTROSE
     Dosage: DOSE RE-INTRODUCED
     Route: 041
  10. ETOPOSIDE [Suspect]
     Active Substance: ETOPOSIDE
     Indication: Non-Hodgkin^s lymphoma
     Dosage: ETOPOSIDE INJECTION 90MG + 0.9% SODIUM CHLORIDE INJECTION 360ML (DAY 1-4)
     Route: 041
     Dates: start: 20201009, end: 20201012
  11. ETOPOSIDE [Suspect]
     Active Substance: ETOPOSIDE
     Dosage: ETOPOSIDE INJECTION 90MG + 0.9% SODIUM CHLORIDE INJECTION 360ML (DOSE RE-INTRODUCED)
     Route: 041
  12. MABTHERA [Suspect]
     Active Substance: RITUXIMAB
     Indication: Non-Hodgkin^s lymphoma
     Dosage: RITUXIMAB INJECTION 500MG + 5% GLUCOSE INJECTION 540ML (DAY 0)
     Route: 041
     Dates: start: 20201008, end: 20201008
  13. MABTHERA [Suspect]
     Active Substance: RITUXIMAB
     Dosage: RITUXIMAB INJECTION 100MG + 5% GLUCOSE INJECTION 540ML (DAY 0)
     Route: 041
     Dates: start: 20201008, end: 20201008
  14. MABTHERA [Suspect]
     Active Substance: RITUXIMAB
     Dosage: RITUXIMAB INJECTION 600MG + 5% GLUCOSE INJECTION 540ML (DOSE RE-INTRODUCED)
     Route: 041
  15. DOXORUBICIN HYDROCHLORIDE [Suspect]
     Active Substance: DOXORUBICIN HYDROCHLORIDE
     Indication: Non-Hodgkin^s lymphoma
     Dosage: DOXORUBICIN LIPOSOME INJECTION 20 MG + 5% GLUCOSE INJECTION 250ML (DAY 1-3)
     Route: 041
     Dates: start: 20201009, end: 20201011
  16. DOXORUBICIN HYDROCHLORIDE [Suspect]
     Active Substance: DOXORUBICIN HYDROCHLORIDE
     Dosage: DOXORUBICIN LIPOSOME INJECTION 20 MG + 5% GLUCOSE INJECTION 250ML (DOSE RE-INTRODUCED)
     Route: 041
  17. VINORELBINE TARTRATE [Suspect]
     Active Substance: VINORELBINE TARTRATE
     Indication: Non-Hodgkin^s lymphoma
     Dosage: VINORELBINE TARTRATE INJECTION 10MG + 0.9% SODIUM CHLORIDE INJECTION 250ML (DAY 1-4)
     Route: 041
     Dates: start: 20201009, end: 20201012
  18. VINORELBINE TARTRATE [Suspect]
     Active Substance: VINORELBINE TARTRATE
     Dosage: VINORELBINE TARTRATE INJECTION 10MG + 0.9% SODIUM CHLORIDE INJECTION 250ML (DOSE RE-INTRODUCED)
     Route: 041
  19. DEXAMETHASONE [Suspect]
     Active Substance: DEXAMETHASONE
     Indication: Diffuse large B-cell lymphoma
     Dosage: DAY 1-5
     Route: 048
     Dates: start: 20201009, end: 20201013
  20. DEXAMETHASONE [Suspect]
     Active Substance: DEXAMETHASONE
     Indication: Non-Hodgkin^s lymphoma
     Dosage: DOSE RE-INTRODUCED
     Route: 048
  21. PROMETHAZINE [Concomitant]
     Active Substance: PROMETHAZINE HYDROCHLORIDE
     Indication: Hypersensitivity
     Route: 065
     Dates: start: 20201008
  22. GLYCYRRHIZIN [Concomitant]
     Active Substance: GLYCYRRHIZIN
     Indication: Prophylaxis
     Route: 065
     Dates: start: 20201008
  23. ONDANSETRON [Concomitant]
     Active Substance: ONDANSETRON
     Indication: Vomiting
     Route: 065
     Dates: start: 20201008
  24. DEXAMETHASONE [Concomitant]
     Active Substance: DEXAMETHASONE
     Indication: Hypersensitivity
     Route: 065
     Dates: start: 20201008

REACTIONS (2)
  - White blood cell count decreased [Recovering/Resolving]
  - Neutropenia [Recovering/Resolving]

NARRATIVE: CASE EVENT DATE: 20201020
